FAERS Safety Report 9190022 (Version 1)
Quarter: 2013Q1

REPORT INFORMATION
  Report Type: Spontaneous
  Country: GB (occurrence: None)
  Receive Date: 20130322
  Receipt Date: 20130322
  Transmission Date: 20140127
  Serious: Yes (Hospitalization)
  Sender: FDA-Public Use
  Company Number: GB-INDICUS PHARMA-000060

PATIENT
  Age: 66 Year
  Sex: Female

DRUGS (2)
  1. METFORMIN HYDROCHLORIDE (METFORMIN HYDROCHLORIDE) [Suspect]
     Indication: TYPE 2 DIABETES MELLITUS
  2. RAMIPRIL (RAMIPRIL) [Suspect]
     Indication: HYPERTENSION

REACTIONS (20)
  - Lactic acidosis [None]
  - Cardiac arrest [None]
  - Diarrhoea [None]
  - Vomiting [None]
  - Abdominal pain [None]
  - Oliguria [None]
  - Hypothermia [None]
  - Hypotension [None]
  - Hyperkalaemia [None]
  - Bradycardia [None]
  - Unresponsive to stimuli [None]
  - Haemodynamic instability [None]
  - Dehydration [None]
  - Toxicity to various agents [None]
  - Sepsis [None]
  - Cellulitis [None]
  - Peritonitis [None]
  - Renal failure acute [None]
  - Hypoglycaemia [None]
  - Large intestine perforation [None]
